FAERS Safety Report 11442991 (Version 4)
Quarter: 2016Q2

REPORT INFORMATION
  Report Type: Report from Study
  Country: US (occurrence: US)
  Receive Date: 20150901
  Receipt Date: 20160412
  Transmission Date: 20160815
  Serious: No
  Sender: FDA-Public Use
  Company Number: ADR-2015-00799

PATIENT
  Age: 42 Year
  Sex: Female

DRUGS (10)
  1. DILAUDID [Suspect]
     Active Substance: HYDROMORPHONE HYDROCHLORIDE
     Dosage: 3.793 MG/DAY
     Route: 037
  2. BUPIVACAINE. [Suspect]
     Active Substance: BUPIVACAINE
     Dosage: 10.055 MG/DAY
     Route: 037
     Dates: start: 20150318
  3. COMPOUNDED BACLOFEN [Suspect]
     Active Substance: BACLOFEN
     Dosage: 268.13 MCG/DAY
     Route: 037
     Dates: start: 20150318
  4. DILAUDID [Suspect]
     Active Substance: HYDROMORPHONE HYDROCHLORIDE
     Dosage: 3.352 MG/DAY
     Route: 037
     Dates: start: 20150318
  5. CLONIDINE. [Suspect]
     Active Substance: CLONIDINE
     Dosage: 113.80 MCG/DAY
     Route: 037
  6. ACETAMINOPHEN. [Suspect]
     Active Substance: ACETAMINOPHEN
  7. COMPOUNDED BACLOFEN [Suspect]
     Active Substance: BACLOFEN
     Dosage: 303.47 MCG/DAY
     Route: 037
  8. BUPIVACAINE. [Suspect]
     Active Substance: BUPIVACAINE
     Dosage: 11.380 MG/DAY
     Route: 037
  9. HYDROCODONE [Suspect]
     Active Substance: HYDROCODONE
  10. CLONIDINE. [Suspect]
     Active Substance: CLONIDINE
     Dosage: 100.55 MCG/DAY
     Route: 037
     Dates: start: 20150318

REACTIONS (1)
  - Medical device site pain [Not Recovered/Not Resolved]

NARRATIVE: CASE EVENT DATE: 20150318
